FAERS Safety Report 19215049 (Version 1)
Quarter: 2021Q2

REPORT INFORMATION
  Report Type: Spontaneous
  Country: US (occurrence: US)
  Receive Date: 20210504
  Receipt Date: 20210504
  Transmission Date: 20210717
  Serious: No
  Sender: FDA-Public Use
  Company Number: US-TEIKOKU PHARMA USA-TPU2021-00485

PATIENT
  Sex: Female
  Weight: 113.5 kg

DRUGS (3)
  1. LIDODERM [Suspect]
     Active Substance: LIDOCAINE
     Indication: ACCIDENT AT WORK
     Dosage: 1?2 PATCHES PER DAY TO HER LUMBER AREA
     Route: 061
     Dates: start: 2004
  2. OXYCODONE [Concomitant]
     Active Substance: OXYCODONE
  3. MUSCLE RELAXER [Concomitant]
     Active Substance: UNSPECIFIED INGREDIENT

REACTIONS (4)
  - Incorrect dose administered [Unknown]
  - Knee arthroplasty [Unknown]
  - Dyspepsia [Unknown]
  - Tooth loss [Unknown]

NARRATIVE: CASE EVENT DATE: 2012
